FAERS Safety Report 24186345 (Version 2)
Quarter: 2024Q3

REPORT INFORMATION
  Report Type: Report from Study
  Country: US (occurrence: None)
  Receive Date: 20240808
  Receipt Date: 20240915
  Transmission Date: 20241017
  Serious: Yes (Hospitalization)
  Sender: ASTRAZENECA
  Company Number: 2021A757790

PATIENT
  Age: 560 Month
  Sex: Male
  Weight: 95.3 kg

DRUGS (1)
  1. LOKELMA [Suspect]
     Active Substance: SODIUM ZIRCONIUM CYCLOSILICATE
     Indication: Blood potassium increased
     Dosage: ONE PACKET DAILY
     Route: 048
     Dates: start: 202108

REACTIONS (4)
  - Blood creatinine increased [Recovered/Resolved]
  - Chromaturia [Unknown]
  - Catheter site pain [Unknown]
  - Product dose omission issue [Recovered/Resolved]

NARRATIVE: CASE EVENT DATE: 20210801
